FAERS Safety Report 10209346 (Version 1)
Quarter: 2014Q2

REPORT INFORMATION
  Report Type: Report from Study
  Country: FR (occurrence: FR)
  Receive Date: 20140531
  Receipt Date: 20140531
  Transmission Date: 20141212
  Serious: Yes (Other)
  Sender: FDA-Public Use
  Company Number: FR-AMGEN-FRACT2014039425

PATIENT
  Age: 56 Year
  Sex: Male

DRUGS (8)
  1. PANITUMUMAB [Suspect]
     Indication: GASTROOESOPHAGEAL CANCER
     Dosage: 432 MG, UNK
     Route: 042
     Dates: start: 20121103
  2. OXALIPLATIN [Concomitant]
     Indication: GASTROOESOPHAGEAL CANCER
     Dosage: 170 MG, UNK
     Route: 042
     Dates: start: 20121107
  3. LEUCOVORIN                         /00566701/ [Concomitant]
     Indication: GASTROOESOPHAGEAL CANCER
     Dosage: 400 MG, UNK
     Route: 042
     Dates: start: 20121107
  4. 5-FU                               /00098801/ [Concomitant]
     Indication: GASTROOESOPHAGEAL CANCER
     Dosage: 300 MG, UNK
     Route: 040
     Dates: start: 20121107, end: 20130110
  5. 5-FU                               /00098801/ [Concomitant]
     Dosage: 4000 MG, UNK
     Route: 042
     Dates: start: 20121107, end: 20130110
  6. TIORFAN [Concomitant]
     Indication: DIARRHOEA
     Dosage: UNK
     Route: 048
     Dates: start: 20130110
  7. SMECTA                             /00837601/ [Concomitant]
     Indication: DIARRHOEA
     Dosage: UNK
     Route: 048
     Dates: start: 20130110
  8. IMODIUM [Concomitant]
     Indication: DIARRHOEA
     Dosage: UNK
     Route: 048
     Dates: start: 20130110

REACTIONS (1)
  - Folliculitis [Recovered/Resolved]
